FAERS Safety Report 5889782-X (Version None)
Quarter: 2008Q3

REPORT INFORMATION
  Report Type: 
  Country: None (occurrence: None)
  Receive Date: 20080919
  Receipt Date: 20080908
  Transmission Date: 20090109
  Serious: Yes (Hospitalization, Other)
  Sender: FDA-Public Use
  Company Number: US-ELI_LILLY_AND_COMPANY-US200809002477

PATIENT
  Sex: Female

DRUGS (4)
  1. CYMBALTA [Suspect]
     Dosage: 60 MG, UNK
  2. PROTONIX [Concomitant]
  3. LAMICTAL [Concomitant]
  4. TOPAMAX [Concomitant]

REACTIONS (3)
  - ABORTION SPONTANEOUS [None]
  - CHOLECYSTITIS [None]
  - DRUG EXPOSURE DURING PREGNANCY [None]
